FAERS Safety Report 5856330-X (Version None)
Quarter: 2008Q3

REPORT INFORMATION
  Report Type: 
  Country: None (occurrence: None)
  Receive Date: 20080821
  Receipt Date: 20080812
  Transmission Date: 20090109
  Serious: Yes (Death, Other)
  Sender: FDA-Public Use
  Company Number: GXKR2008GB07617

PATIENT
  Age: 94 Year
  Sex: Female
  Weight: 45 kg

DRUGS (17)
  1. SIMVASTATIN [Suspect]
     Indication: TRANSIENT ISCHAEMIC ATTACK
     Dosage: 40 MG, ORAL
     Route: 048
     Dates: start: 20071204, end: 20071211
  2. AMIODARONE HCL [Concomitant]
  3. BECLOMETHASONE DIPROPIONATE (BECLOMETHASONE DIPROPIONATE) [Concomitant]
  4. BENDROFLUMETHIAZIDE (BECLOMETHASONE DIPROPIONATE) [Concomitant]
  5. BISOPROLOL FUMARATE [Concomitant]
  6. CALCIUM GLUCONATE [Concomitant]
  7. CARBOMER (CARBOMER) [Concomitant]
  8. CODEINE PHOSPHATE AND ACETAMINOPHEN [Concomitant]
  9. DIGOXIN [Concomitant]
  10. FERROUS SULPHATE (FERROUS SULFATE) [Concomitant]
  11. IPRATROPIUM BROMIDE [Concomitant]
  12. MOVICOL (MACROGOL, POTASSIUM CHLORIDE, SODIUM BICARBONATE, SODIUM CHLO [Concomitant]
  13. OMEPRAZOLE [Concomitant]
  14. RAMIPRIL [Concomitant]
  15. SALBUTAMOL (SALBUTAMOL) [Concomitant]
  16. SERETIDE ALLEN + HANBURY'S LTD (FLUTICASONE PROPIONATE, SALMETEROL XIN [Concomitant]
  17. WARFARIN SODIUM [Concomitant]

REACTIONS (4)
  - BLOOD ALBUMIN DECREASED [None]
  - HEPATIC FAILURE [None]
  - INTERNATIONAL NORMALISED RATIO INCREASED [None]
  - PNEUMONIA [None]
